FAERS Safety Report 5885971-9 (Version None)
Quarter: 2008Q3

REPORT INFORMATION
  Report Type: 
  Country: None (occurrence: None)
  Receive Date: 20080917
  Receipt Date: 20080911
  Transmission Date: 20090109
  Serious: Yes (Other)
  Sender: FDA-Public Use
  Company Number: US-BAYER-200829395NA

PATIENT
  Age: 18 Year
  Sex: Female
  Weight: 54 kg

DRUGS (1)
  1. YAZ [Suspect]
     Indication: CONTRACEPTION
     Route: 048

REACTIONS (2)
  - ABORTION SPONTANEOUS [None]
  - PREGNANCY ON ORAL CONTRACEPTIVE [None]
